FAERS Safety Report 9361052 (Version 3)
Quarter: 2013Q3

REPORT INFORMATION
  Report Type: Report from Study
  Country: PL (occurrence: PL)
  Receive Date: 20130621
  Receipt Date: 20130821
  Transmission Date: 20140515
  Serious: Yes (Hospitalization)
  Sender: FDA-Public Use
  Company Number: PL-ASTELLAS-2013EU004731

PATIENT
  Age: 8 Year
  Sex: Female
  Weight: 24 kg

DRUGS (9)
  1. BLINDED SOLIFENACIN [Suspect]
     Indication: HYPERTONIC BLADDER
     Dosage: 2.6 ML, UID/QD
     Route: 048
     Dates: start: 20130406, end: 20130517
  2. BLINDED SOLIFENACIN [Suspect]
     Dosage: 7.5 ML, UID/QD
     Route: 048
     Dates: start: 20130518, end: 20130523
  3. CEFUROXIM                          /00454602/ [Concomitant]
     Dosage: UNK
     Route: 065
     Dates: start: 20110312, end: 20110316
  4. CEFUROXIM                          /00454602/ [Concomitant]
     Dosage: UNK
     Route: 065
     Dates: start: 20110509, end: 20130523
  5. CEFUROXIME AXETIL [Concomitant]
     Dosage: UNK
     Route: 065
     Dates: start: 20110317, end: 20110320
  6. AMOXICILLIN CLAVULANIC ACID [Concomitant]
     Dosage: UNK
     Route: 065
     Dates: start: 20120702, end: 20120710
  7. OMEPRAZOLUM [Concomitant]
     Dosage: UNK
     Route: 065
     Dates: start: 20110316, end: 20120812
  8. DRIPTANE [Concomitant]
     Dosage: UNK
     Route: 065
     Dates: start: 20110604, end: 20121219
  9. FURAGIN                            /00356801/ [Concomitant]
     Dosage: UNK
     Route: 065
     Dates: start: 20110321, end: 20120812

REACTIONS (1)
  - Pyelonephritis [Recovered/Resolved]
